FAERS Safety Report 7010734-0 (Version None)
Quarter: 2010Q3

REPORT INFORMATION
  Report Type: 
  Country: None (occurrence: None)
  Receive Date: 20100923
  Receipt Date: 20100917
  Transmission Date: 20110219
  Serious: No
  Sender: FDA-Public Use
  Company Number: US-PFIZER INC-2010118176

PATIENT
  Sex: Male
  Weight: 80.726 kg

DRUGS (3)
  1. VIAGRA [Suspect]
     Indication: ERECTILE DYSFUNCTION
     Dosage: 50 MG, UNK
     Route: 048
     Dates: start: 20080101
  2. VITAMIN B-12 [Concomitant]
     Dosage: 2000 MG, DAILY
     Route: 048
  3. AMLODIPINE BESILATE [Concomitant]
     Dosage: 5 MG, DAILY
     Route: 048

REACTIONS (1)
  - DRUG INEFFECTIVE [None]
